FAERS Safety Report 23192284 (Version 2)
Quarter: 2023Q4

REPORT INFORMATION
  Report Type: Spontaneous
  Country: GB (occurrence: GB)
  Receive Date: 20231116
  Receipt Date: 20231116
  Transmission Date: 20240110
  Serious: Yes (Other)
  Sender: FDA-Public Use
  Company Number: GB-PFIZER INC-PV202300183384

PATIENT
  Age: 39 Year
  Sex: Male

DRUGS (8)
  1. FENTANYL [Suspect]
     Active Substance: FENTANYL\FENTANYL CITRATE
     Indication: Anaesthesia
     Dosage: UNK
  2. THIOPENTAL [Suspect]
     Active Substance: THIOPENTAL
     Indication: Anaesthesia
     Dosage: UNK
  3. TUBOCURARINE [Suspect]
     Active Substance: TUBOCURARINE
     Indication: Anaesthesia
     Dosage: UNK
  4. NITROUS OXIDE [Suspect]
     Active Substance: NITROUS OXIDE
     Indication: Anaesthesia
     Dosage: UNK
  5. ENFLURANE [Suspect]
     Active Substance: ENFLURANE
     Indication: Anaesthesia
     Dosage: UNK
  6. OXYGEN [Suspect]
     Active Substance: OXYGEN
     Indication: Anaesthesia
     Dosage: UNK
  7. PAPAVERETUM [Concomitant]
     Indication: Premedication
     Dosage: 15 MG
  8. SCOPOLAMINE [Concomitant]
     Active Substance: SCOPOLAMINE
     Indication: Premedication
     Dosage: 0.3 MG

REACTIONS (1)
  - Atrioventricular block complete [Recovered/Resolved with Sequelae]
